FAERS Safety Report 15703395 (Version 1)
Quarter: 2018Q4

REPORT INFORMATION
  Report Type: Spontaneous
  Country: US (occurrence: US)
  Receive Date: 20181210
  Receipt Date: 20181210
  Transmission Date: 20190205
  Serious: No
  Sender: FDA-Public Use
  Company Number: US-KYOWAKIRIN-2017BKK002913

PATIENT

DRUGS (1)
  1. SANCUSO [Suspect]
     Active Substance: GRANISETRON
     Indication: PROPHYLAXIS OF NAUSEA AND VOMITING
     Dosage: 1 DF, EVERY 3 DAYS AS NEEDED
     Route: 062
     Dates: start: 20170915, end: 20170929

REACTIONS (4)
  - Nausea [Unknown]
  - Drug ineffective [Unknown]
  - Application site irritation [Unknown]
  - Malaise [Unknown]

NARRATIVE: CASE EVENT DATE: 2017
